FAERS Safety Report 7075668-4 (Version None)
Quarter: 2010Q4

REPORT INFORMATION
  Report Type: 
  Country: None (occurrence: None)
  Receive Date: 20101030
  Receipt Date: 20101029
  Transmission Date: 20110411
  Serious: Yes (Other)
  Sender: FDA-Public Use
  Company Number: US-WYE-H18437610

PATIENT
  Sex: Female
  Weight: 72.64 kg

DRUGS (7)
  1. PREMPRO [Suspect]
     Indication: HORMONE REPLACEMENT THERAPY
     Dosage: NOT PROVIDED
     Route: 048
     Dates: start: 19830101
  2. SYNTHROID [Concomitant]
     Dosage: NOT PROVIDED
  3. ZOCOR [Concomitant]
     Dosage: NOT PROVIDED
     Route: 065
  4. ZOLOFT [Concomitant]
     Dosage: 1/2 TABLET
     Route: 065
  5. KLONOPIN [Concomitant]
     Dosage: 1/2 TABLET
     Route: 065
  6. AVAPRO [Concomitant]
     Dosage: NOT PROVIDED
     Route: 065
  7. FUROSEMIDE [Concomitant]
     Dosage: NOT PROVIDED
     Route: 065

REACTIONS (3)
  - KNEE ARTHROPLASTY [None]
  - PRODUCT PACKAGING ISSUE [None]
  - SKIN LACERATION [None]
